FAERS Safety Report 6076431-3 (Version None)
Quarter: 2009Q1

REPORT INFORMATION
  Report Type: 
  Country: None (occurrence: None)
  Receive Date: 20090211
  Receipt Date: 20090211
  Transmission Date: 20090719
  Serious: Yes (Hospitalization)
  Sender: FDA-Public Use
  Company Number: None

PATIENT
  Age: 33 Month
  Sex: Female
  Weight: 14.5151 kg

DRUGS (1)
  1. TRIAMINIC-12 [Suspect]
     Indication: ACCIDENTAL EXPOSURE
     Dosage: 75MG OF DIPHENHYDRAMINE 1X; 30 MG OF PHENYLPHRINE 1X
     Dates: start: 20090128

REACTIONS (3)
  - FAILURE OF CHILD RESISTANT MECHANISM FOR PHARMACEUTICAL PRODUCT [None]
  - INCORRECT DOSE ADMINISTERED [None]
  - MEDICATION ERROR [None]
